FAERS Safety Report 26056287 (Version 1)
Quarter: 2025Q4

REPORT INFORMATION
  Report Type: Spontaneous
  Country: EU (occurrence: EU)
  Receive Date: 20251118
  Receipt Date: 20251118
  Transmission Date: 20260118
  Serious: Yes (Other)
  Sender: ABBVIE
  Company Number: EU-ABBVIE-6539935

PATIENT
  Age: 65 Year

DRUGS (2)
  1. DEXAMETHASONE [Suspect]
     Active Substance: DEXAMETHASONE
     Indication: Retinal vein occlusion
     Dosage: TIME INTERVAL: AS NECESSARY
     Route: 050
  2. RANIBIZUMAB [Suspect]
     Active Substance: RANIBIZUMAB
     Indication: Retinal vein occlusion
     Route: 065

REACTIONS (6)
  - Malignant melanoma [Unknown]
  - Rheumatoid arthritis [Unknown]
  - Visual acuity tests abnormal [Unknown]
  - Intraocular pressure test abnormal [Unknown]
  - Macular oedema [Not Recovered/Not Resolved]
  - Treatment noncompliance [Unknown]
